FAERS Safety Report 6191083-X (Version None)
Quarter: 2009Q2

REPORT INFORMATION
  Report Type: 
  Country: None (occurrence: None)
  Receive Date: 20090513
  Receipt Date: 20090513
  Transmission Date: 20091009
  Serious: No
  Sender: FDA-Public Use
  Company Number: None

PATIENT

DRUGS (1)
  1. MORPHINE [Suspect]

REACTIONS (5)
  - HYPERTENSION [None]
  - HYPOXIA [None]
  - MENTAL STATUS CHANGES [None]
  - PRODUCT LABEL ISSUE [None]
  - PRODUCT QUALITY ISSUE [None]
